FAERS Safety Report 9504876 (Version 1)
Quarter: 2013Q3

REPORT INFORMATION
  Report Type: Spontaneous
  Country: US (occurrence: US)
  Receive Date: 20130906
  Receipt Date: 20130906
  Transmission Date: 20140515
  Serious: Yes (Death)
  Sender: FDA-Public Use
  Company Number: US-ASTRAZENECA-2013SE67498

PATIENT
  Age: 39 Year
  Sex: Male

DRUGS (2)
  1. SEROQUEL [Suspect]
     Indication: BIPOLAR DISORDER
     Route: 048
     Dates: start: 201303
  2. LATUDA [Interacting]
     Route: 065
     Dates: start: 201308

REACTIONS (4)
  - Drug interaction [Fatal]
  - Completed suicide [Fatal]
  - Bipolar I disorder [Fatal]
  - Drug effect incomplete [Fatal]
